FAERS Safety Report 8374828-X (Version None)
Quarter: 2012Q2

REPORT INFORMATION
  Report Type: 
  Country: None (occurrence: None)
  Receive Date: 20120521
  Receipt Date: 20120517
  Transmission Date: 20120825
  Serious: Yes (Life-Threatening, Hospitalization)
  Sender: FDA-Public Use
  Company Number: FR-PFIZER INC-FR-WYE-H16596510

PATIENT
  Age: 85 Year
  Sex: Male

DRUGS (7)
  1. POTASSIUM CHLORIDE [Concomitant]
     Dosage: UNK
     Route: 065
  2. CORDARONE [Suspect]
     Indication: CARDIAC FAILURE
     Dosage: UNK
     Route: 065
     Dates: start: 20100423
  3. FLUTICASONE PROPIONATE AND SALMETEROL [Concomitant]
     Dosage: UNK
     Route: 065
  4. PENTOXIFYLLINE [Concomitant]
     Dosage: UNK
     Route: 065
  5. DILTIAZEM HCL [Interacting]
     Indication: CARDIAC FAILURE
     Dosage: 300 MG, DAILY DOSE NOT PROVIDED
     Route: 048
  6. NEBIVOLOL HCL [Interacting]
     Indication: CARDIAC FAILURE
     Dosage: 5 MG DAILY
     Route: 048
  7. COZAAR [Concomitant]
     Dosage: UNK
     Route: 065

REACTIONS (5)
  - TORSADE DE POINTES [None]
  - VENTRICULAR TACHYCARDIA [None]
  - DRUG INTERACTION [None]
  - COMA [None]
  - CARDIO-RESPIRATORY ARREST [None]
